FAERS Safety Report 4813456-7 (Version None)
Quarter: 2005Q4

REPORT INFORMATION
  Report Type: 
  Country: None (occurrence: None)
  Receive Date: 20051028
  Receipt Date: 20050214
  Transmission Date: 20060501
  Serious: No
  Sender: FDA-Public Use
  Company Number: US-GLAXOSMITHKLINE-A0545463A

PATIENT
  Age: 49 Year
  Sex: Female

DRUGS (1)
  1. ADVAIR DISKUS 100/50 [Suspect]
     Indication: BRONCHITIS
     Dosage: 1PUFF PER DAY
     Route: 048
     Dates: start: 20041225, end: 20050216

REACTIONS (4)
  - ORAL DISCOMFORT [None]
  - ORAL MUCOSAL EXFOLIATION [None]
  - STOMATITIS [None]
  - THROAT IRRITATION [None]
